FAERS Safety Report 4313832-5 (Version None)
Quarter: 2004Q1

REPORT INFORMATION
  Report Type: 
  Country: None (occurrence: None)
  Receive Date: 20040308
  Receipt Date: 20040226
  Transmission Date: 20041129
  Serious: Yes (Hospitalization)
  Sender: FDA-Public Use
  Company Number: WAES 0402USA01938

PATIENT
  Age: 49 Year
  Sex: Male

DRUGS (9)
  1. GLUCOTROL [Concomitant]
  2. GLUCOPHAGE [Concomitant]
  3. AVANDIA [Concomitant]
  4. ZOCOR [Suspect]
     Indication: HYPERCHOLESTEROLAEMIA
     Route: 048
     Dates: end: 20040201
  5. ZOCOR [Suspect]
     Route: 048
     Dates: start: 19940101
  6. ZOCOR [Suspect]
     Route: 048
  7. ZOCOR [Suspect]
     Indication: DIABETES MELLITUS
     Route: 048
     Dates: end: 20040201
  8. ZOCOR [Suspect]
     Route: 048
     Dates: start: 19940101
  9. ZOCOR [Suspect]
     Route: 048

REACTIONS (5)
  - ABDOMINAL PAIN UPPER [None]
  - CONVULSION [None]
  - DIZZINESS [None]
  - LOSS OF CONSCIOUSNESS [None]
  - MEDICATION ERROR [None]
